FAERS Safety Report 4908408-2 (Version None)
Quarter: 2006Q1

REPORT INFORMATION
  Report Type: 
  Country: None (occurrence: None)
  Receive Date: 20060210
  Receipt Date: 20060201
  Transmission Date: 20060701
  Serious: Yes (Hospitalization)
  Sender: FDA-Public Use
  Company Number: JP-JNJFOC-20050600337

PATIENT
  Sex: Male
  Weight: 52 kg

DRUGS (18)
  1. REMICADE [Suspect]
     Dosage: 07-OCT  TREATMENT INEFFECTIVE
     Route: 042
  2. REMICADE [Suspect]
     Dosage: 06-SEP  TREATMENT INEFFECTIVE
     Route: 042
  3. REMICADE [Suspect]
     Indication: CROHN'S DISEASE
     Dosage: 09-AUG TREATMENT INEFFECTIVE
     Route: 042
  4. DAIKEN CHUUTOU [Concomitant]
     Indication: CROHN'S DISEASE
     Route: 048
  5. SALAZOPYRIN [Concomitant]
     Dosage: ORAL.
  6. SALAZOPYRIN [Concomitant]
     Indication: CROHN'S DISEASE
     Dosage: ROUTE OF ADM: PR
  7. PHELLOBERIN [Concomitant]
     Route: 048
  8. PHELLOBERIN [Concomitant]
     Route: 048
  9. PHELLOBERIN [Concomitant]
     Indication: CROHN'S DISEASE
     Route: 048
  10. CRAVIT [Concomitant]
     Indication: CROHN'S DISEASE
     Route: 048
  11. FENAZOX [Concomitant]
     Indication: CROHN'S DISEASE
     Route: 048
  12. PREDONINE [Concomitant]
     Route: 048
  13. PREDONINE [Concomitant]
     Route: 048
  14. PREDONINE [Concomitant]
     Route: 048
  15. PREDONINE [Concomitant]
     Indication: CROHN'S DISEASE
     Route: 048
  16. ENTERAL NUTRITION [Concomitant]
  17. IMURAN [Concomitant]
     Indication: CROHN'S DISEASE
     Route: 048
  18. DA JIAN ZHONG TANG [Concomitant]
     Indication: CROHN'S DISEASE
     Route: 048

REACTIONS (5)
  - ANAL CANCER [None]
  - ANAL STENOSIS [None]
  - CROHN'S DISEASE [None]
  - DRUG INEFFECTIVE [None]
  - PYREXIA [None]
